FAERS Safety Report 20228496 (Version 1)
Quarter: 2021Q4

REPORT INFORMATION
  Report Type: Spontaneous
  Country: US (occurrence: US)
  Receive Date: 20211225
  Receipt Date: 20211225
  Transmission Date: 20220304
  Serious: Yes (Other)
  Sender: FDA-Public Use
  Company Number: US-TEVA-2021-US-1991214

PATIENT
  Sex: Female

DRUGS (2)
  1. PROGLYCEM [Suspect]
     Active Substance: DIAZOXIDE
     Indication: Nesidioblastosis
     Route: 048
  2. PROGLYCEM [Suspect]
     Active Substance: DIAZOXIDE
     Indication: Hypoglycaemia

REACTIONS (1)
  - Drug ineffective [Unknown]
